FAERS Safety Report 9637927 (Version 2)
Quarter: 2014Q2

REPORT INFORMATION
  Report Type: Spontaneous
  Country: IT (occurrence: IT)
  Receive Date: 20131022
  Receipt Date: 20140410
  Transmission Date: 20141212
  Serious: Yes (Hospitalization)
  Sender: FDA-Public Use
  Company Number: IT-ACTAVIS-2013-18962

PATIENT
  Age: 79 Year
  Sex: Male
  Weight: 100 kg

DRUGS (1)
  1. DOCETAXEL ACTAVIS [Suspect]
     Indication: PROSTATE CANCER
     Dosage: 150 MG/CYCLIC
     Route: 042
     Dates: start: 20130724, end: 20130724

REACTIONS (2)
  - Leukopenia [Recovered/Resolved]
  - Staphylococcal sepsis [Recovered/Resolved]
